FAERS Safety Report 10039204 (Version 1)
Quarter: 2014Q1

REPORT INFORMATION
  Report Type: Report from Study
  Country: BR (occurrence: BR)
  Receive Date: 20140326
  Receipt Date: 20140326
  Transmission Date: 20141002
  Serious: Yes (Death, Hospitalization)
  Sender: FDA-Public Use
  Company Number: PHHY2014BR034875

PATIENT
  Age: 90 Year
  Sex: Female
  Weight: 68 kg

DRUGS (6)
  1. EXELON [Suspect]
     Indication: DEMENTIA ALZHEIMER^S TYPE
     Dosage: UNK UKN, Q12H
     Dates: start: 201305, end: 20130803
  2. EXELON PATCH [Suspect]
     Indication: DEMENTIA ALZHEIMER^S TYPE
     Dosage: UNK UKN, QD
     Route: 062
     Dates: start: 201301, end: 201304
  3. METFORMIN [Concomitant]
     Indication: DIABETES MELLITUS
     Dosage: 2 DF, DAILY
     Dates: end: 20130803
  4. NATRILIX - SLOW RELEASE [Concomitant]
     Indication: HYPERTENSION
     Dosage: 2 DF, DAILY
     Dates: end: 20130803
  5. ASPIRIN [Concomitant]
     Indication: VENOUS OCCLUSION
     Dosage: 1 DF, DAILY
     Dates: end: 20130803
  6. CILOSTAZOL [Concomitant]
     Dosage: 1 DF, (100 MG), DAILY
     Dates: end: 20130803

REACTIONS (4)
  - Malaise [Fatal]
  - Multi-organ failure [Fatal]
  - Ileus paralytic [Fatal]
  - Diabetes mellitus [Fatal]
